FAERS Safety Report 23064753 (Version 1)
Quarter: 2023Q4

REPORT INFORMATION
  Report Type: Report from Study
  Country: AR (occurrence: AR)
  Receive Date: 20231013
  Receipt Date: 20231013
  Transmission Date: 20240110
  Serious: Yes (Hospitalization, Other)
  Sender: FDA-Public Use
  Company Number: AR-JNJFOC-20231015619

PATIENT
  Age: 62 Year
  Sex: Female
  Weight: 87 kg

DRUGS (3)
  1. SIMPONI [Suspect]
     Active Substance: GOLIMUMAB
     Indication: Rheumatoid arthritis
     Route: 040
  2. ACYCLOVIR [Concomitant]
     Active Substance: ACYCLOVIR
  3. PIPERACILLIN SODIUM\TAZOBACTAM SODIUM [Concomitant]
     Active Substance: PIPERACILLIN SODIUM\TAZOBACTAM SODIUM

REACTIONS (7)
  - Pneumonia [Unknown]
  - Varicella encephalitis [Unknown]
  - Altered state of consciousness [Unknown]
  - Renal impairment [Unknown]
  - Adrenal insufficiency [Unknown]
  - Lung disorder [Unknown]
  - Cataract operation [Unknown]
